FAERS Safety Report 23474200 (Version 1)
Quarter: 2024Q1

REPORT INFORMATION
  Report Type: Report from Study
  Country: US (occurrence: US)
  Receive Date: 20240204
  Receipt Date: 20240204
  Transmission Date: 20240410
  Serious: Yes (Death)
  Sender: FDA-Public Use
  Company Number: US-EXELIXIS-CABO-22059058

PATIENT
  Sex: Female
  Weight: 54.014 kg

DRUGS (4)
  1. CABOMETYX [Suspect]
     Active Substance: CABOZANTINIB S-MALATE
     Indication: Renal cell carcinoma
     Dosage: 20 MG, QD
     Route: 048
     Dates: start: 20221010
  2. LISINOPRIL [Concomitant]
     Active Substance: LISINOPRIL
  3. PROBIOTICS NOS [Concomitant]
     Active Substance: PROBIOTICS NOS
  4. XGEVA [Concomitant]
     Active Substance: DENOSUMAB

REACTIONS (1)
  - Metastases to heart [Fatal]
